FAERS Safety Report 5950614-2 (Version None)
Quarter: 2008Q4

REPORT INFORMATION
  Report Type: 
  Country: None (occurrence: None)
  Receive Date: 20081112
  Receipt Date: 20081105
  Transmission Date: 20090506
  Serious: Yes (Hospitalization, Disabling)
  Sender: FDA-Public Use
  Company Number: US-JNJFOC-20070805610

PATIENT
  Sex: Female
  Weight: 93.8 kg

DRUGS (4)
  1. ORTHO EVRA [Suspect]
     Indication: CONTRACEPTION
     Route: 062
  2. ORTHO EVRA [Suspect]
     Indication: MENSTRUATION IRREGULAR
     Route: 062
  3. ORTHO EVRA [Suspect]
     Indication: DYSMENORRHOEA
     Route: 062
  4. NORVASC [Concomitant]
     Indication: HYPERTENSION

REACTIONS (3)
  - ARTERIAL THROMBOSIS [None]
  - LEG AMPUTATION [None]
  - NAUSEA [None]
